FAERS Safety Report 11111415 (Version 1)
Quarter: 2015Q2

REPORT INFORMATION
  Report Type: Spontaneous
  Country: HR (occurrence: HR)
  Receive Date: 20150513
  Receipt Date: 20150513
  Transmission Date: 20150821
  Serious: Yes (Hospitalization)
  Sender: FDA-Public Use
  Company Number: PHHY2015HR055548

PATIENT
  Age: 74 Year
  Sex: Female
  Weight: 90 kg

DRUGS (4)
  1. OSPAMOX [Suspect]
     Active Substance: AMOXICILLIN
     Indication: ACUTE TONSILLITIS
     Dosage: 1 G, BID
     Route: 048
     Dates: start: 20141219, end: 20141219
  2. AROMASIN [Concomitant]
     Active Substance: EXEMESTANE
     Indication: BREAST CANCER
     Dosage: 25 MG, QD
     Route: 048
     Dates: start: 20110430
  3. PRILEN [Concomitant]
     Active Substance: RAMIPRIL
     Indication: HYPERTENSION
     Dosage: 2.5 MG, QD
     Route: 048
     Dates: start: 20130228
  4. CARVELOL [Concomitant]
     Indication: HYPERTENSION
     Dosage: 6.25 MG, QD
     Route: 048
     Dates: start: 20130228

REACTIONS (5)
  - Oedema [Recovered/Resolved]
  - Urticaria [Recovered/Resolved]
  - Bronchospasm [Recovered/Resolved]
  - Choking sensation [Recovered/Resolved]
  - Erythema [Recovered/Resolved]

NARRATIVE: CASE EVENT DATE: 20141219
